FAERS Safety Report 10662037 (Version 2)
Quarter: 2014Q4

REPORT INFORMATION
  Report Type: Spontaneous
  Country: IT (occurrence: IT)
  Receive Date: 20141218
  Receipt Date: 20141218
  Transmission Date: 20150529
  Serious: Yes (Death, Other)
  Sender: FDA-Public Use
  Company Number: IT-CELGENE-083-50794-13115493

PATIENT

DRUGS (1)
  1. VIDAZA [Suspect]
     Active Substance: AZACITIDINE
     Indication: ACUTE MYELOID LEUKAEMIA
     Dosage: 75 MILLIGRAM/SQ. METER
     Route: 065
     Dates: start: 200909, end: 201204

REACTIONS (11)
  - Febrile infection [Fatal]
  - Gastrointestinal haemorrhage [Unknown]
  - Diarrhoea [Unknown]
  - Injection site reaction [Unknown]
  - Leukaemia recurrent [Fatal]
  - Thrombocytopenia [Unknown]
  - Constipation [Unknown]
  - Nausea [Unknown]
  - Vomiting [Unknown]
  - Neutropenia [Unknown]
  - No therapeutic response [Unknown]
